FAERS Safety Report 7462224-9 (Version None)
Quarter: 2011Q2

REPORT INFORMATION
  Report Type: 
  Country: None (occurrence: None)
  Receive Date: 20110506
  Receipt Date: 20110328
  Transmission Date: 20111010
  Serious: Yes (Other)
  Sender: FDA-Public Use
  Company Number: US-BAYER-200934804NA

PATIENT
  Age: 51 Year
  Sex: Male
  Weight: 78.231 kg

DRUGS (20)
  1. TRASYLOL [Suspect]
     Indication: CORONARY ARTERY BYPASS
     Dosage: 1 ML, 200 ML IN PUMP PRIME (LOADING DOSE), 50 CC/HR
     Route: 042
     Dates: start: 20050824, end: 20050824
  2. PHENOBARBITAL [Concomitant]
     Dosage: 3 TABLETS/BEDTIME
     Route: 048
  3. HEPARIN [Concomitant]
     Dosage: 30,000 UNITS
     Route: 042
     Dates: start: 20050824, end: 20050824
  4. INSULIN [Concomitant]
     Dosage: 15 U, UNK
     Route: 042
     Dates: start: 20050824, end: 20050824
  5. VERSED [Concomitant]
     Dosage: 5 MG, UNK
     Route: 042
     Dates: start: 20050824, end: 20050824
  6. PANCURONIUM BROMIDE [Concomitant]
     Dosage: 12 MG, UNK
     Route: 042
     Dates: start: 20050824, end: 20050824
  7. NITROGLYCERIN [Concomitant]
     Dosage: UNK
     Route: 042
     Dates: start: 20050824, end: 20050824
  8. HEPARIN [Concomitant]
     Dosage: 5000 U, UNK
     Route: 042
     Dates: start: 20050824, end: 20050824
  9. SUCCINYLCHOLINE CHLORIDE [Concomitant]
     Dosage: UNK
     Route: 042
     Dates: start: 20050824, end: 20050824
  10. PROTAMINE SULFATE [Concomitant]
     Dosage: 300 MG, UNK
     Route: 042
     Dates: start: 20050824, end: 20050824
  11. LIDOCAINE [Concomitant]
     Dosage: 100 MG, UNK
     Route: 042
     Dates: start: 20050824, end: 20050824
  12. LEVOPHED [Concomitant]
     Dosage: UNK
     Route: 042
     Dates: start: 20050824, end: 20050824
  13. EPHEDRINE [Concomitant]
     Dosage: 25 MG, UNK
     Route: 042
     Dates: start: 20050824, end: 20050824
  14. EPINEPHRINE [Concomitant]
     Dosage: UNK
     Route: 042
     Dates: start: 20050824, end: 20050824
  15. MILRINONE [Concomitant]
     Dosage: UNK
     Route: 042
     Dates: start: 20050824, end: 20050824
  16. VANCOMYCIN [Concomitant]
     Dosage: 2 G, UNK
     Route: 042
     Dates: start: 20050824, end: 20050824
  17. ERY-TAB [Concomitant]
     Dosage: 333 MG, TID
     Route: 048
  18. ACETYLSALICYLIC ACID SRT [Concomitant]
     Dosage: 81 MG, QD
     Route: 048
  19. HEPARIN [Concomitant]
     Dosage: 10 ML, UNK
     Route: 042
     Dates: start: 20050824, end: 20050824
  20. ALBUMIN (HUMAN) [Concomitant]
     Dosage: 50 PUMP PRIME
     Route: 042
     Dates: start: 20050824, end: 20050824

REACTIONS (12)
  - ANXIETY [None]
  - INJURY [None]
  - MULTI-ORGAN FAILURE [None]
  - EMOTIONAL DISTRESS [None]
  - FEAR [None]
  - ANHEDONIA [None]
  - RENAL INJURY [None]
  - NERVOUSNESS [None]
  - FEAR OF DEATH [None]
  - RENAL FAILURE [None]
  - PAIN [None]
  - DEPRESSION [None]
